FAERS Safety Report 13838709 (Version 1)
Quarter: 2017Q3

REPORT INFORMATION
  Report Type: Spontaneous
  Country: US (occurrence: US)
  Receive Date: 20170807
  Receipt Date: 20170807
  Transmission Date: 20171127
  Serious: No
  Sender: FDA-Public Use
  Company Number: US-PFIZER INC-2017332833

PATIENT
  Sex: Female

DRUGS (1)
  1. DEPO-ESTRADIOL [Suspect]
     Active Substance: ESTRADIOL CYPIONATE
     Indication: HORMONE THERAPY
     Dosage: UNK UNK, MONTHLY (I TAKE ONE A MONTH)

REACTIONS (4)
  - Hyperhidrosis [Unknown]
  - Migraine [Unknown]
  - Pre-existing condition improved [Unknown]
  - Therapeutic response unexpected [Unknown]
